FAERS Safety Report 15123452 (Version 1)
Quarter: 2018Q3

REPORT INFORMATION
  Report Type: Spontaneous
  Country: US (occurrence: US)
  Receive Date: 20180709
  Receipt Date: 20180709
  Transmission Date: 20181010
  Serious: Yes (Other)
  Sender: FDA-Public Use
  Company Number: US-BEH-2018092573

PATIENT
  Age: 69 Year
  Sex: Female
  Weight: 63.49 kg

DRUGS (15)
  1. DIPHENHYDRAMINE. [Concomitant]
     Active Substance: DIPHENHYDRAMINE
  2. MULTIVITAMINS [Concomitant]
     Active Substance: VITAMINS
  3. PLAQUENIL                          /00072602/ [Concomitant]
     Active Substance: HYDROXYCHLOROQUINE DIPHOSPHATE
  4. HIZENTRA [Suspect]
     Active Substance: HUMAN IMMUNOGLOBULIN G
     Indication: SELECTIVE IGG SUBCLASS DEFICIENCY
     Dosage: 8 G, QW
     Route: 058
     Dates: start: 20180423
  5. AMLODIPINE [Concomitant]
     Active Substance: AMLODIPINE BESYLATE
  6. ASPIRIN. [Concomitant]
     Active Substance: ASPIRIN
  7. PLAVIX [Concomitant]
     Active Substance: CLOPIDOGREL BISULFATE
  8. PREDNISONE. [Concomitant]
     Active Substance: PREDNISONE
  9. ZOFRAN [Concomitant]
     Active Substance: ONDANSETRON HYDROCHLORIDE
  10. HIZENTRA [Suspect]
     Active Substance: HUMAN IMMUNOGLOBULIN G
     Dosage: UNK
     Route: 058
  11. METHOTREXATE. [Concomitant]
     Active Substance: METHOTREXATE
  12. FOLIC ACID. [Concomitant]
     Active Substance: FOLIC ACID
  13. EPINEPHRINE. [Concomitant]
     Active Substance: EPINEPHRINE
  14. IRON [Concomitant]
     Active Substance: IRON
  15. ACETAMINOPHEN. [Concomitant]
     Active Substance: ACETAMINOPHEN

REACTIONS (4)
  - Adverse reaction [Unknown]
  - Fatigue [Unknown]
  - Shock symptom [Unknown]
  - Cold sweat [Unknown]

NARRATIVE: CASE EVENT DATE: 201806
